FAERS Safety Report 11792406 (Version 1)
Quarter: 2015Q4

REPORT INFORMATION
  Report Type: Other
  Country: DE (occurrence: DE)
  Receive Date: 20151202
  Receipt Date: 20151202
  Transmission Date: 20160305
  Serious: Yes (Hospitalization)
  Sender: FDA-Public Use
  Company Number: DE-GLENMARK PHARMACEUTICALS INC, USA.-2015GMK020847

PATIENT

DRUGS (19)
  1. PRAMIPEXOLE. [Suspect]
     Active Substance: PRAMIPEXOLE
     Dosage: 0.54 MG, QD
     Route: 048
     Dates: start: 20150818, end: 20150823
  2. CANDESARTAN [Suspect]
     Active Substance: CANDESARTAN
     Indication: PRODUCT USED FOR UNKNOWN INDICATION
     Dosage: 32 MG, QD
     Route: 048
  3. PANTOPRAZOL [Suspect]
     Active Substance: PANTOPRAZOLE SODIUM
     Indication: PRODUCT USED FOR UNKNOWN INDICATION
     Dosage: 20 MG, QD
     Route: 048
  4. BRINTELLIX [Suspect]
     Active Substance: VORTIOXETINE HYDROBROMIDE
     Dosage: 10 MG, QD
     Route: 048
     Dates: start: 20150630, end: 20150707
  5. LORAZEPAM. [Concomitant]
     Active Substance: LORAZEPAM
     Dosage: 3-0,75 MG, UNK
     Route: 048
     Dates: start: 20150626, end: 20150829
  6. PRAMIPEXOLE. [Suspect]
     Active Substance: PRAMIPEXOLE
     Dosage: 0.54 MG, QD
     Route: 048
     Dates: start: 20150803, end: 20150812
  7. PRAMIPEXOLE. [Suspect]
     Active Substance: PRAMIPEXOLE
     Dosage: 0.71 MG, QD
     Route: 048
     Dates: start: 20150814, end: 20150817
  8. BRINTELLIX [Suspect]
     Active Substance: VORTIOXETINE HYDROBROMIDE
     Dosage: 5 MG, QD
     Route: 048
     Dates: start: 20150621, end: 20150629
  9. ZOPICLONE [Concomitant]
     Active Substance: ZOPICLONE
     Indication: PRODUCT USED FOR UNKNOWN INDICATION
     Dosage: 7.5 MG, QD
     Route: 048
  10. BRINTELLIX [Suspect]
     Active Substance: VORTIOXETINE HYDROBROMIDE
     Dosage: 15 MG, QD
     Route: 048
     Dates: start: 20150708, end: 20150716
  11. PRAMIPEXOLE. [Suspect]
     Active Substance: PRAMIPEXOLE
     Dosage: 0.88 MG, QD
     Route: 048
     Dates: start: 20150813
  12. LORAZEPAM. [Concomitant]
     Active Substance: LORAZEPAM
     Dosage: 1.5 MG, QD
     Route: 048
     Dates: start: 20150520, end: 20150625
  13. PRAMIPEXOLE. [Suspect]
     Active Substance: PRAMIPEXOLE
     Dosage: 0.264 MG, QD
     Route: 048
     Dates: start: 20150824
  14. BRINTELLIX [Suspect]
     Active Substance: VORTIOXETINE HYDROBROMIDE
     Dosage: 20 MG, QD
     Route: 048
     Dates: start: 20150717
  15. LORAZEPAM. [Concomitant]
     Active Substance: LORAZEPAM
     Dosage: 0.5 MG, QD
     Route: 048
     Dates: start: 20150830
  16. METOPROLOL [Concomitant]
     Active Substance: METOPROLOL
     Indication: PRODUCT USED FOR UNKNOWN INDICATION
     Dosage: 47.5 MG, QD
     Route: 048
  17. PRAMIPEXOLE. [Suspect]
     Active Substance: PRAMIPEXOLE
     Indication: PRODUCT USED FOR UNKNOWN INDICATION
     Dosage: 0.264 MG, QD
     Route: 048
     Dates: start: 20150721, end: 20150802
  18. BRINTELLIX [Suspect]
     Active Substance: VORTIOXETINE HYDROBROMIDE
     Indication: PRODUCT USED FOR UNKNOWN INDICATION
     Dosage: 10 MG, QD
     Route: 048
     Dates: start: 20150617, end: 20150620
  19. LORAZEPAM. [Concomitant]
     Active Substance: LORAZEPAM
     Indication: PRODUCT USED FOR UNKNOWN INDICATION
     Dosage: 2 MG, QD
     Route: 048
     Dates: start: 20150502, end: 20150519

REACTIONS (1)
  - Hyponatraemia [Recovered/Resolved]

NARRATIVE: CASE EVENT DATE: 20150627
